FAERS Safety Report 20087495 (Version 1)
Quarter: 2021Q4

REPORT INFORMATION
  Report Type: Spontaneous
  Country: US (occurrence: None)
  Receive Date: 20211118
  Receipt Date: 20211118
  Transmission Date: 20220303
  Serious: No
  Sender: FDA-Public Use
  Company Number: None

PATIENT

DRUGS (2)
  1. BAMLANIVIMAB [Suspect]
     Active Substance: BAMLANIVIMAB
     Indication: COVID-19 treatment
  2. ETESEVIMAB [Suspect]
     Active Substance: ETESEVIMAB

REACTIONS (4)
  - Infusion related reaction [None]
  - Pruritus [None]
  - Blood pressure systolic increased [None]
  - Hypoaesthesia oral [None]
